FAERS Safety Report 23253003 (Version 1)
Quarter: 2023Q4

REPORT INFORMATION
  Report Type: Report from Study
  Country: CA (occurrence: CA)
  Receive Date: 20231201
  Receipt Date: 20231201
  Transmission Date: 20240110
  Serious: Yes (Hospitalization, Other)
  Sender: FDA-Public Use
  Company Number: CA-HLS-202302598

PATIENT
  Age: 58 Year
  Sex: Male

DRUGS (16)
  1. CLOZARIL [Suspect]
     Active Substance: CLOZAPINE
     Indication: Product used for unknown indication
     Route: 048
     Dates: start: 20231027, end: 20231109
  2. Almagel [Concomitant]
     Indication: Dyspepsia
     Dosage: 40MG/ML, 4 TIMES A DAY AS PER NEEDED.
     Route: 048
     Dates: start: 20231110
  3. POLYETHYLENE GLYCOL 3350 [Concomitant]
     Active Substance: POLYETHYLENE GLYCOL 3350
     Indication: Product used for unknown indication
     Dosage: DAILY AS PER NEEDED
     Route: 048
     Dates: start: 20231110
  4. SENNOSIDES [Concomitant]
     Active Substance: SENNOSIDES
     Indication: Constipation
     Dosage: EVERYDAY AT BED TIME. AS NEEDED
     Route: 048
     Dates: start: 20231110
  5. ZOPICLONE [Concomitant]
     Active Substance: ZOPICLONE
     Indication: Product used for unknown indication
     Dosage: EVERY 8 HOUR AS NEEDED
     Route: 048
     Dates: start: 20231110
  6. ALBUTEROL [Concomitant]
     Active Substance: ALBUTEROL
     Indication: Product used for unknown indication
     Dosage: AS NEEDED
     Route: 045
     Dates: start: 20231110
  7. Loxapine  TAB [Concomitant]
     Indication: Psychotic disorder
     Dosage: 10-20 MG EVERY 1 HOUR AS NEEDED  (MAXIMUM 80 MG PER 4 HOURS), ORAL/INTRAMUSCULAR
     Route: 048
     Dates: start: 20231110
  8. Lorazepam  sublingual tab [Concomitant]
     Indication: Agitation
     Dosage: 1-2 MG EVERY 1 HOUR AS NEEDED (MAXIMUM 8 MG PER 24 HOURS), ORAL/INTRAMUSCULAR
     Route: 060
     Dates: start: 20231110
  9. BENZTROPINE [Concomitant]
     Active Substance: BENZTROPINE
     Indication: Extrapyramidal disorder
     Dosage: 1-2 MG EVERY 12 HOUR AS PER NEEDED, ORAL/INTRAMUSCULAR
     Route: 048
     Dates: start: 20231110
  10. ACETAMINOPHEN [Concomitant]
     Active Substance: ACETAMINOPHEN
     Dosage: 325-650 MG EVERY 4 HOUR AS PER NEEDED
     Route: 048
     Dates: start: 20231110
  11. SEPTRA [Concomitant]
     Active Substance: SULFAMETHOXAZOLE\TRIMETHOPRIM
     Dosage: 1TAB TWICE IN A DAY
     Route: 048
     Dates: end: 20231112
  12. TRAZODONE [Concomitant]
     Active Substance: TRAZODONE HYDROCHLORIDE
     Indication: Product used for unknown indication
     Dosage: EVERYDAY AT BEDTIME
     Route: 048
     Dates: start: 20231110
  13. OLANZAPINE [Concomitant]
     Active Substance: OLANZAPINE
     Indication: Product used for unknown indication
     Dosage: EVERYDAY AT BED TIME.
     Route: 048
     Dates: start: 20231110
  14. Loxapine INJ [Concomitant]
     Indication: Psychotic disorder
     Dosage: 10-20 MG EVERY 1 HOUR AS NEEDED  (MAXIMUM 80 MG PER 4 HOURS), ORAL/INTRAMUSCULAR
     Route: 030
     Dates: start: 20231110
  15. Lorazepam INJ [Concomitant]
     Indication: Agitation
     Dosage: 1-2 MG EVERY 1 HOUR AS NEEDED (MAXIMUM 8 MG PER 24 HOURS), ORAL/INTRAMUSCULAR
     Route: 030
     Dates: start: 20231110
  16. Benztropine INJ [Concomitant]
     Indication: Extrapyramidal disorder
     Dosage: 1-2 MG EVERY 12 HOUR AS PER NEEDED,
     Route: 030
     Dates: start: 20231110

REACTIONS (11)
  - Tachycardia [Unknown]
  - Myocarditis [Unknown]
  - C-reactive protein increased [Unknown]
  - Troponin increased [Unknown]
  - Eosinophil count decreased [Unknown]
  - Haematocrit decreased [Unknown]
  - Haemoglobin decreased [Unknown]
  - Left ventricular dysfunction [Unknown]
  - Aortic root enlargement procedure [Unknown]
  - Orthostatic hypotension [Unknown]
  - Psychotic disorder [Unknown]

NARRATIVE: CASE EVENT DATE: 20231108
